FAERS Safety Report 7973650-3 (Version None)
Quarter: 2011Q4

REPORT INFORMATION
  Report Type: 
  Country: None (occurrence: None)
  Receive Date: 20111213
  Receipt Date: 20111208
  Transmission Date: 20120403
  Serious: Yes (Death, Other)
  Sender: FDA-Public Use
  Company Number: GB-ROCHE-1014778

PATIENT
  Sex: Female

DRUGS (6)
  1. LUCENTIS [Suspect]
     Indication: AGE-RELATED MACULAR DEGENERATION
     Route: 050
     Dates: start: 20100612
  2. LACTULOSE [Concomitant]
  3. SIMVASTATIN [Concomitant]
  4. MOVIPREP [Concomitant]
  5. TEMAZEPAM [Concomitant]
  6. CANDESARTAN CILEXETIL [Concomitant]

REACTIONS (3)
  - DEATH [None]
  - ATRIAL FIBRILLATION [None]
  - HYPERTENSION [None]
